FAERS Safety Report 5225153-7 (Version None)
Quarter: 2007Q1

REPORT INFORMATION
  Report Type: 
  Country: None (occurrence: None)
  Receive Date: 20070131
  Receipt Date: 20070118
  Transmission Date: 20070707
  Serious: Yes (Hospitalization)
  Sender: FDA-Public Use
  Company Number: US-KINGPHARMUSA00001-K200700043

PATIENT

DRUGS (7)
  1. ALTACE [Suspect]
     Dosage: 1.25 MG, QD
     Route: 048
     Dates: start: 20061205, end: 20061207
  2. CARDENSIEL [Suspect]
     Dosage: 1.25 MG, QD
     Route: 048
     Dates: start: 20061205, end: 20061206
  3. CALCIPARINE [Concomitant]
     Dosage: .4 ML, UNK
     Dates: start: 20061204
  4. KARDEGIC                           /00002703/ [Concomitant]
     Dosage: 75 MG, UNK
     Route: 048
     Dates: start: 20061204
  5. OGAST [Concomitant]
     Dates: start: 20061204
  6. PLAVIX [Concomitant]
     Dosage: 75 MG, UNK
     Dates: start: 20061204
  7. ZOCOR [Concomitant]
     Dates: start: 20061204

REACTIONS (2)
  - ACUTE PULMONARY OEDEMA [None]
  - HYPOTENSION [None]
